FAERS Safety Report 9491413 (Version 2)
Quarter: 2013Q1

REPORT INFORMATION
  Report Type: Not Available
  Country: US (occurrence: US)
  Receive Date: 20120619
  Receipt Date: 20120619
  Transmission Date: 20140127
  Serious: Yes (Hospitalization)
  Sender: FDA-Public Use
  Company Number: US-LUNDBECK-DKLU1065260

PATIENT
  Age: 4 None
  Sex: Male
  Weight: 16.1 kg

DRUGS (5)
  1. CLOBAZAM [Suspect]
     Indication: LENNOX-GASTAUT SYNDROME
     Route: 048
     Dates: start: 20090317
  2. CLOBAZAM [Suspect]
     Route: 048
     Dates: start: 20090317, end: 20100925
  3. CLOBAZAM [Suspect]
     Route: 048
     Dates: start: 20100926
  4. PHENOBARBITAL [Concomitant]
     Indication: EPILEPSY
     Route: 048
     Dates: start: 20100927
  5. PHENOBARBITAL [Concomitant]
     Route: 048
     Dates: start: 20091215, end: 20100922

REACTIONS (1)
  - Toxicity to various agents [Recovered/Resolved]
